FAERS Safety Report 9029751 (Version 1)
Quarter: 2013Q1

REPORT INFORMATION
  Report Type: Other
  Country: JP (occurrence: JP)
  Receive Date: 20130124
  Receipt Date: 20130124
  Transmission Date: 20140127
  Serious: Yes (Other)
  Sender: FDA-Public Use
  Company Number: JP-US-EMD SERONO, INC.-7188630

PATIENT
  Age: 70 Year
  Sex: Female

DRUGS (5)
  1. INTERFERON BETA [Suspect]
     Indication: MALIGNANT MELANOMA STAGE II
     Dosage: 300X10E9 IU/DAY
  2. DACARBAZINE [Suspect]
     Indication: MALIGNANT MELANOMA STAGE II
     Route: 042
  3. DACARBAZINE [Suspect]
     Route: 042
  4. NIMUSTINE [Suspect]
     Indication: MALIGNANT MELANOMA STAGE II
     Route: 042
  5. VINCRISTINE [Suspect]
     Indication: MALIGNANT MELANOMA STAGE II
     Route: 042

REACTIONS (2)
  - Thrombocytopenia [Recovered/Resolved]
  - Leukopenia [Unknown]
